FAERS Safety Report 8238315-1 (Version None)
Quarter: 2012Q1

REPORT INFORMATION
  Report Type: 
  Country: None (occurrence: None)
  Receive Date: 20120326
  Receipt Date: 20120313
  Transmission Date: 20120608
  Serious: Yes (Other)
  Sender: FDA-Public Use
  Company Number: HRA-CDB20120086

PATIENT
  Age: 31 Year
  Sex: Female
  Weight: 64 kg

DRUGS (1)
  1. ELLAONE 30 MG TABLET (ELLAONE) (ULIPRISTAL ACETATE) [Suspect]
     Indication: POST COITAL CONTRACEPTION
     Dosage: 30 MG (30 MG,1 IN 1 D),ORAL
     Route: 048
     Dates: start: 20111118

REACTIONS (2)
  - PREGNANCY AFTER POST COITAL CONTRACEPTION [None]
  - MATERNAL EXPOSURE DURING PREGNANCY [None]
